FAERS Safety Report 9378669 (Version 6)
Quarter: 2015Q1

REPORT INFORMATION
  Report Type: Report from Study
  Country: BR (occurrence: BR)
  Receive Date: 20130702
  Receipt Date: 20150317
  Transmission Date: 20150721
  Serious: Yes (Other)
  Sender: FDA-Public Use
  Company Number: BR-ROCHE-1129091

PATIENT
  Sex: Male
  Weight: 63 kg

DRUGS (13)
  1. PEGASYS [Suspect]
     Active Substance: PEGINTERFERON ALFA-2A
     Route: 065
     Dates: start: 20130810
  2. TELAPREVIR [Suspect]
     Active Substance: TELAPREVIR
     Indication: HEPATITIS C
     Route: 065
     Dates: end: 20130810
  3. PEGASYS [Suspect]
     Active Substance: PEGINTERFERON ALFA-2A
     Route: 042
     Dates: start: 201103
  4. PEGASYS [Suspect]
     Active Substance: PEGINTERFERON ALFA-2A
     Route: 065
     Dates: start: 201306
  5. RIBAVIRIN. [Suspect]
     Active Substance: RIBAVIRIN
     Indication: HEPATITIS C
     Route: 048
     Dates: start: 201103
  6. RIBAVIRIN. [Suspect]
     Active Substance: RIBAVIRIN
     Route: 065
     Dates: start: 20130810
  7. FLUOXETINE [Concomitant]
     Active Substance: FLUOXETINE\FLUOXETINE HYDROCHLORIDE
     Indication: DEPRESSION
     Route: 065
  8. PEGASYS [Suspect]
     Active Substance: PEGINTERFERON ALFA-2A
     Indication: HEPATITIS C
     Route: 042
     Dates: start: 2011, end: 2011
  9. TELAPREVIR [Suspect]
     Active Substance: TELAPREVIR
     Route: 065
     Dates: start: 201306
  10. RIBAVIRIN. [Suspect]
     Active Substance: RIBAVIRIN
     Route: 065
     Dates: start: 201306
  11. CLARITIN-D 12 HOUR [Concomitant]
     Active Substance: LORATADINE\PSEUDOEPHEDRINE SULFATE
     Indication: RHINITIS
  12. RIBAVIRIN. [Suspect]
     Active Substance: RIBAVIRIN
     Route: 065
     Dates: start: 20131021
  13. PEGASYS [Suspect]
     Active Substance: PEGINTERFERON ALFA-2A
     Route: 065
     Dates: start: 201308, end: 20131021

REACTIONS (26)
  - Pruritus generalised [Not Recovered/Not Resolved]
  - Alopecia [Not Recovered/Not Resolved]
  - Abdominal pain [Not Recovered/Not Resolved]
  - Pain of skin [Recovered/Resolved]
  - Chills [Recovered/Resolved]
  - Tremor [Recovered/Resolved]
  - Fatigue [Not Recovered/Not Resolved]
  - Pruritus [Not Recovered/Not Resolved]
  - Pyrexia [Unknown]
  - Emotional disorder [Recovered/Resolved]
  - Pruritus [Recovered/Resolved]
  - Stomatitis [Recovered/Resolved]
  - Malaise [Unknown]
  - Oesophagitis [Unknown]
  - Ocular icterus [Not Recovered/Not Resolved]
  - Depression [Recovering/Resolving]
  - Immunodeficiency [Recovered/Resolved]
  - Blister [Unknown]
  - Fatigue [Recovered/Resolved]
  - Disease progression [Not Recovered/Not Resolved]
  - Delirium [Recovered/Resolved]
  - Herpes virus infection [Recovered/Resolved]
  - Headache [Unknown]
  - Nausea [Unknown]
  - Body temperature increased [Unknown]
  - Immunodeficiency [Not Recovered/Not Resolved]
